FAERS Safety Report 7417929-2 (Version None)
Quarter: 2011Q2

REPORT INFORMATION
  Report Type: 
  Country: None (occurrence: None)
  Receive Date: 20110415
  Receipt Date: 20110405
  Transmission Date: 20111010
  Serious: Yes (Hospitalization)
  Sender: FDA-Public Use
  Company Number: US-ACTELION-A-NJ2010-40138

PATIENT

DRUGS (3)
  1. REVATIO [Concomitant]
  2. TRACLEER [Suspect]
     Indication: PULMONARY ARTERIAL HYPERTENSION
     Dosage: UNK MG, BID
     Route: 048
     Dates: start: 20020510
  3. WARFARIN [Concomitant]

REACTIONS (2)
  - NASAL CONGESTION [None]
  - PULMONARY CONGESTION [None]
